FAERS Safety Report 17561928 (Version 2)
Quarter: 2020Q2

REPORT INFORMATION
  Report Type: Spontaneous
  Country: PT (occurrence: PT)
  Receive Date: 20200319
  Receipt Date: 20200625
  Transmission Date: 20200713
  Serious: Yes (Disabling)
  Sender: FDA-Public Use
  Company Number: PT-TEVA-2020-PT-1202945

PATIENT
  Age: 79 Year
  Sex: Female

DRUGS (5)
  1. METFORMIN, VILDAGLIPTIN [Concomitant]
     Active Substance: METFORMIN\VILDAGLIPTIN
  2. COTRIMOXAZOL RATIOPHARM [Suspect]
     Active Substance: SULFAMETHOXAZOLE\TRIMETHOPRIM
     Indication: URINARY TRACT INFECTION
     Dosage: 12 / 12H UNTIL FINISHED, 2 DF
     Route: 048
     Dates: start: 20200211
  3. PRAVASTATIN SODIUM. [Concomitant]
     Active Substance: PRAVASTATIN SODIUM
  4. CLOPIDOGREL [Concomitant]
     Active Substance: CLOPIDOGREL BISULFATE
  5. METFORMIN [Concomitant]
     Active Substance: METFORMIN HYDROCHLORIDE

REACTIONS (3)
  - Erythema [Unknown]
  - Urticaria [Unknown]
  - Rash vesicular [Unknown]

NARRATIVE: CASE EVENT DATE: 20190214
